FAERS Safety Report 9192298 (Version 1)
Quarter: 2013Q1

REPORT INFORMATION
  Report Type: Spontaneous
  Country: US (occurrence: US)
  Receive Date: 20130327
  Receipt Date: 20130327
  Transmission Date: 20140127
  Serious: No
  Sender: FDA-Public Use
  Company Number: US-JNJFOC-20130309912

PATIENT
  Sex: Female

DRUGS (1)
  1. DURAGESIC [Suspect]
     Indication: PRODUCT USED FOR UNKNOWN INDICATION
     Route: 062
     Dates: start: 2010

REACTIONS (6)
  - Inappropriate schedule of drug administration [Unknown]
  - Therapeutic response decreased [Unknown]
  - Product quality issue [Unknown]
  - Product quality issue [Unknown]
  - Product quality issue [Unknown]
  - Poor quality drug administered [Unknown]
